FAERS Safety Report 14871899 (Version 1)
Quarter: 2018Q2

REPORT INFORMATION
  Report Type: Other
  Country: None (occurrence: US)
  Receive Date: 20180509
  Receipt Date: 20180509
  Transmission Date: 20180711
  Serious: Yes (Other)
  Sender: FDA-Public Use
  Company Number: US-MEDAC PHARMA, INC.-2047502

PATIENT
  Age: 30 Year
  Sex: Male

DRUGS (2)
  1. METHOTREXATE. [Suspect]
     Active Substance: METHOTREXATE
     Indication: PSORIATIC ARTHROPATHY
  2. ADALIMUMAB [Suspect]
     Active Substance: ADALIMUMAB

REACTIONS (4)
  - Streptococcal infection [Recovered/Resolved]
  - Staphylococcal infection [Recovered/Resolved]
  - Cellulitis [Recovered/Resolved]
  - Abscess [Recovered/Resolved]
